FAERS Safety Report 19466576 (Version 2)
Quarter: 2021Q2

REPORT INFORMATION
  Report Type: Report from Study
  Country: None (occurrence: US)
  Receive Date: 20210628
  Receipt Date: 20210630
  Transmission Date: 20210717
  Serious: Yes (Hospitalization)
  Sender: FDA-Public Use
  Company Number: US-ABBVIE-21K-163-3964963-00

PATIENT
  Sex: Female

DRUGS (1)
  1. VENCLEXTA [Suspect]
     Active Substance: VENETOCLAX
     Indication: ACUTE MYELOID LEUKAEMIA
     Dosage: TAKE 20 MG (2 TABLETS OF 10MG ) BY MOUTH EVERY DAY ON WEEK
     Route: 048

REACTIONS (3)
  - Off label use [Unknown]
  - Blast cell crisis [Unknown]
  - Circumstance or information capable of leading to medication error [Unknown]
